FAERS Safety Report 6877084-4 (Version None)
Quarter: 2010Q3

REPORT INFORMATION
  Report Type: 
  Country: None (occurrence: None)
  Receive Date: 20100727
  Receipt Date: 20100727
  Transmission Date: 20110219
  Serious: Yes (Hospitalization)
  Sender: FDA-Public Use
  Company Number: None

PATIENT
  Age: 68 Year
  Sex: Male
  Weight: 86.1834 kg

DRUGS (1)
  1. RECLAST [Suspect]
     Indication: OSTEOPENIA
     Dosage: ONCE YEAR INTRAVESICA
     Route: 043
     Dates: start: 20100330, end: 20100330

REACTIONS (3)
  - LOSS OF EMPLOYMENT [None]
  - PAIN [None]
  - PAIN IN EXTREMITY [None]
